FAERS Safety Report 20694853 (Version 1)
Quarter: 2022Q2

REPORT INFORMATION
  Report Type: Spontaneous
  Country: US (occurrence: US)
  Receive Date: 20220411
  Receipt Date: 20220411
  Transmission Date: 20220721
  Serious: Yes (Hospitalization)
  Sender: FDA-Public Use
  Company Number: US-MYLANLABS-2022M1025614

PATIENT
  Age: 35 Year
  Sex: Female

DRUGS (10)
  1. LEVOTHYROXINE [Suspect]
     Active Substance: LEVOTHYROXINE
     Indication: Autoimmune thyroiditis
     Dosage: 225 MICROGRAM, QD
     Route: 065
  2. LEVOTHYROXINE [Suspect]
     Active Substance: LEVOTHYROXINE
     Indication: Hypothyroidism
  3. HYDRALAZINE [Suspect]
     Active Substance: HYDRALAZINE HYDROCHLORIDE
     Indication: Pre-eclampsia
     Dosage: 5 MILLIGRAM
     Route: 042
  4. MAGNESIUM SULFATE [Suspect]
     Active Substance: MAGNESIUM SULFATE
     Indication: Seizure prophylaxis
     Dosage: UNK (2G/H)
     Route: 042
  5. PREDNISONE [Suspect]
     Active Substance: PREDNISONE
     Indication: Primary adrenal insufficiency
     Dosage: 10 MILLIGRAM, QD
     Route: 065
  6. INSULIN LISPRO [Suspect]
     Active Substance: INSULIN LISPRO
     Indication: Type 1 diabetes mellitus
     Dosage: UNK UNK, QD; ADMINISTERED VIA INSULIN PUMP (TOTAL OF 34 UNITS DAILY))
     Route: 065
  7. FLUDROCORTISONE [Suspect]
     Active Substance: FLUDROCORTISONE
     Indication: Primary adrenal insufficiency
     Dosage: 0.1 MILLIGRAM, QD
     Route: 065
  8. OXYTOCIN [Concomitant]
     Active Substance: OXYTOCIN
     Indication: Procedural haemorrhage
     Dosage: 20 UNITS
     Route: 042
  9. CARBOPROST [Concomitant]
     Active Substance: CARBOPROST
     Indication: Procedural haemorrhage
     Dosage: 250 MICROGRAM
     Route: 030
  10. OXYTOCIN [Concomitant]
     Active Substance: OXYTOCIN
     Indication: Procedural haemorrhage
     Dosage: UNK (10 U)
     Route: 015

REACTIONS (2)
  - Drug ineffective [Unknown]
  - Maternal exposure during pregnancy [Recovered/Resolved]
